FAERS Safety Report 6380920-1 (Version None)
Quarter: 2009Q3

REPORT INFORMATION
  Report Type: 
  Country: None (occurrence: None)
  Receive Date: 20090929
  Receipt Date: 20090924
  Transmission Date: 20100115
  Serious: Yes (Other)
  Sender: FDA-Public Use
  Company Number: D0063010A

PATIENT

DRUGS (1)
  1. REQUIP [Suspect]
     Route: 048

REACTIONS (1)
  - CARDIAC FAILURE [None]
